FAERS Safety Report 18458575 (Version 1)
Quarter: 2020Q4

REPORT INFORMATION
  Report Type: Spontaneous
  Country: US (occurrence: US)
  Receive Date: 20201103
  Receipt Date: 20201103
  Transmission Date: 20210114
  Serious: No
  Sender: FDA-Public Use
  Company Number: US-BEH-2020124141

PATIENT
  Age: 74 Year
  Sex: Male

DRUGS (11)
  1. FLONASE [Concomitant]
     Active Substance: FLUTICASONE PROPIONATE
  2. NICOTINE. [Concomitant]
     Active Substance: NICOTINE
  3. TESTOSTERONE. [Concomitant]
     Active Substance: TESTOSTERONE
  4. TRAZODONE [Concomitant]
     Active Substance: TRAZODONE HYDROCHLORIDE
  5. HYDROCODONE [Concomitant]
     Active Substance: HYDROCODONE
  6. ADVAIR HFA [Concomitant]
     Active Substance: FLUTICASONE PROPIONATE\SALMETEROL XINAFOATE
  7. GABAPENTIN. [Concomitant]
     Active Substance: GABAPENTIN
  8. ASPIRIN. [Concomitant]
     Active Substance: ASPIRIN
  9. BENADRYL [Concomitant]
     Active Substance: DIPHENHYDRAMINE HYDROCHLORIDE
  10. HIZENTRA [Suspect]
     Active Substance: HUMAN IMMUNOGLOBULIN G
     Indication: SELECTIVE IGA IMMUNODEFICIENCY
     Dosage: 24 GRAM, QOW
     Route: 058
     Dates: start: 20180130
  11. LEVOTHYROXINE. [Concomitant]
     Active Substance: LEVOTHYROXINE

REACTIONS (2)
  - Ill-defined disorder [Not Recovered/Not Resolved]
  - Product supply issue [Not Recovered/Not Resolved]

NARRATIVE: CASE EVENT DATE: 202010
